FAERS Safety Report 9856485 (Version 1)
Quarter: 2014Q1

REPORT INFORMATION
  Report Type: Spontaneous
  Country: IT (occurrence: IT)
  Receive Date: 20140130
  Receipt Date: 20140130
  Transmission Date: 20141002
  Serious: Yes (Hospitalization)
  Sender: FDA-Public Use
  Company Number: PHHY2014IT007403

PATIENT
  Age: 48 Year
  Sex: Male

DRUGS (3)
  1. RIBAVIRIN [Suspect]
     Indication: CHRONIC HEPATITIS C
     Dosage: 800 MG, QD
     Route: 048
     Dates: start: 20131026, end: 20140112
  2. PEG INTRON [Suspect]
     Indication: CHRONIC HEPATITIS C
     Dosage: 10 UG, PRN
     Route: 058
     Dates: start: 20131026, end: 20140111
  3. VICTRELIS [Suspect]
     Indication: CHRONIC HEPATITIS C
     Dosage: 12 DF, QD
     Route: 048
     Dates: start: 20131102, end: 20140112

REACTIONS (3)
  - Agranulocytosis [Recovering/Resolving]
  - Hyperpyrexia [Recovering/Resolving]
  - Abscess limb [Recovering/Resolving]
